FAERS Safety Report 8774037 (Version 5)
Quarter: 2012Q4

REPORT INFORMATION
  Report Type: 
  Country: PR (occurrence: PR)
  Receive Date: 20120908
  Receipt Date: 20121203
  Transmission Date: 20130627
  Serious: Yes (Hospitalization, Other)
  Sender: FDA-Public Use
  Company Number: PR-ABBOTT-12P-131-0975710-00

PATIENT
  Age: 71 Year
  Sex: Female
  Weight: 79.9 kg

DRUGS (8)
  1. HUMIRA PEN [Suspect]
     Indication: RHEUMATOID ARTHRITIS
     Route: 058
     Dates: start: 2009, end: 20120813
  2. METHOTREXATE [Concomitant]
     Indication: RHEUMATOID ARTHRITIS
     Route: 048
  3. PREDNISONE [Concomitant]
     Indication: RHEUMATOID ARTHRITIS
     Route: 048
  4. RELAFEN [Concomitant]
     Indication: PAIN
     Route: 048
  5. COZAAR [Concomitant]
     Indication: HYPERTENSION
     Route: 048
  6. ADVAIR [Concomitant]
     Indication: EMPHYSEMA
     Route: 048
  7. SPIRIVA [Concomitant]
     Indication: EMPHYSEMA
     Route: 048
  8. PREVACID [Concomitant]
     Indication: GASTRIC ULCER
     Route: 048

REACTIONS (4)
  - Skin ulcer [Recovering/Resolving]
  - Phlebitis [Recovering/Resolving]
  - Impaired healing [Unknown]
  - Pain [Unknown]
